FAERS Safety Report 8924769 (Version 1)
Quarter: 2012Q4

REPORT INFORMATION
  Report Type: Spontaneous
  Country: US (occurrence: None)
  Receive Date: 20121116
  Receipt Date: 20121116
  Transmission Date: 20130627
  Serious: Yes (Life-Threatening)
  Sender: FDA-Public Use
  Company Number: 2012P1063532

PATIENT
  Age: 15 Year
  Sex: Male
  Weight: 55.34 kg

DRUGS (2)
  1. MYORISAN 40 MG [Suspect]
     Indication: ACNE
     Route: 048
     Dates: start: 20121002, end: 20121031
  2. TYLENOL [Suspect]
     Indication: SUICIDE ATTEMPT

REACTIONS (2)
  - Intentional overdose [None]
  - Suicide attempt [None]
